FAERS Safety Report 6240427-9 (Version None)
Quarter: 2009Q2

REPORT INFORMATION
  Report Type: 
  Country: None (occurrence: None)
  Receive Date: 20090618
  Receipt Date: 20090618
  Transmission Date: 20091009
  Serious: Yes (Life-Threatening, Other)
  Sender: FDA-Public Use
  Company Number: None

PATIENT
  Age: 47 Year
  Sex: Female
  Weight: 52.1637 kg

DRUGS (3)
  1. LYRICA [Suspect]
     Indication: MIXED CONNECTIVE TISSUE DISEASE
     Dosage: 150MG TO 600 MG 1 DAILY
     Dates: start: 20040801, end: 20080826
  2. LYRICA [Suspect]
     Indication: MYOFASCIAL PAIN SYNDROME
     Dosage: 150MG TO 600 MG 1 DAILY
     Dates: start: 20040801, end: 20080826
  3. LYRICA [Suspect]
     Indication: SYSTEMIC LUPUS ERYTHEMATOSUS
     Dosage: 150MG TO 600 MG 1 DAILY
     Dates: start: 20040801, end: 20080826

REACTIONS (20)
  - APHASIA [None]
  - AUTOIMMUNE DISORDER [None]
  - BACK PAIN [None]
  - BLOOD DISORDER [None]
  - CHEST PAIN [None]
  - CONDITION AGGRAVATED [None]
  - DEPRESSION [None]
  - DRUG EFFECT DECREASED [None]
  - EMOTIONAL DISORDER [None]
  - FEELING ABNORMAL [None]
  - FRUSTRATION [None]
  - INSOMNIA [None]
  - MOOD SWINGS [None]
  - NIGHTMARE [None]
  - OVERDOSE [None]
  - PAIN [None]
  - SELF ESTEEM DECREASED [None]
  - TACHYPHRENIA [None]
  - TREMOR [None]
  - WEIGHT DECREASED [None]
